FAERS Safety Report 5194594-9 (Version None)
Quarter: 2006Q4

REPORT INFORMATION
  Report Type: 
  Country: None (occurrence: None)
  Receive Date: 20061229
  Receipt Date: 20061221
  Transmission Date: 20070319
  Serious: Yes (Hospitalization, Other)
  Sender: FDA-Public Use
  Company Number: US-JNJFOC-20061206372

PATIENT
  Sex: Female
  Weight: 49.17 kg

DRUGS (13)
  1. INFLIXIMAB [Suspect]
     Route: 042
  2. INFLIXIMAB [Suspect]
     Indication: RHEUMATOID ARTHRITIS
     Dosage: 36+ INFUSIONS ON UNSPECIFIED DATES
     Route: 042
  3. DIOVAN [Concomitant]
  4. CALCIUM [Concomitant]
  5. FOLIC ACID [Concomitant]
  6. HYDROCHLOROTHIAZIDE [Concomitant]
  7. HYDROCODONE BITARTRATE [Concomitant]
  8. METHOTREXATE [Concomitant]
  9. MULTI-VITAMIN [Concomitant]
  10. TIAZAC [Concomitant]
  11. PROTONIX [Concomitant]
  12. ASCORBIC ACID [Concomitant]
  13. PREDNISONE [Concomitant]

REACTIONS (1)
  - HODGKIN'S DISEASE NODULAR SCLEROSIS STAGE III [None]
